FAERS Safety Report 6992257-8 (Version None)
Quarter: 2010Q3

REPORT INFORMATION
  Report Type: 
  Country: None (occurrence: None)
  Receive Date: 20100916
  Receipt Date: 20100916
  Transmission Date: 20110219
  Serious: Yes (Other)
  Sender: FDA-Public Use
  Company Number: None

PATIENT
  Age: 23 Year
  Sex: Male

DRUGS (3)
  1. ISOVUE-300 [Suspect]
     Indication: COMPUTERISED TOMOGRAM
     Dosage: 100 ML ONCE IV BOLUS
     Route: 040
     Dates: start: 20100909, end: 20100909
  2. FENTANYL CITRATE [Concomitant]
  3. ZOFRAN [Concomitant]

REACTIONS (4)
  - COUGH [None]
  - DYSPNOEA [None]
  - THROAT TIGHTNESS [None]
  - URTICARIA [None]
